FAERS Safety Report 23707373 (Version 1)
Quarter: 2024Q2

REPORT INFORMATION
  Report Type: Spontaneous
  Country: FR (occurrence: FR)
  Receive Date: 20240404
  Receipt Date: 20240404
  Transmission Date: 20240716
  Serious: Yes (Life-Threatening, Hospitalization)
  Sender: FDA-Public Use
  Company Number: None

PATIENT
  Age: 76 Year
  Sex: Female

DRUGS (4)
  1. PACLITAXEL [Suspect]
     Active Substance: PACLITAXEL
     Indication: Chemotherapy
     Dosage: UNK
     Route: 042
     Dates: start: 20240125, end: 20240125
  2. PERJETA [Suspect]
     Active Substance: PERTUZUMAB
     Indication: Chemotherapy
     Dosage: 240 MILLIGRAM, 1 TOTAL
     Route: 042
     Dates: start: 20240125, end: 20240125
  3. PERJETA [Suspect]
     Active Substance: PERTUZUMAB
     Dosage: 240 MILLIGRAM, 1 TOTAL
     Route: 042
     Dates: start: 20231103, end: 20231103
  4. HERCEPTIN [Suspect]
     Active Substance: TRASTUZUMAB
     Indication: Chemotherapy
     Dosage: UNK
     Route: 042
     Dates: start: 20240125, end: 20240125

REACTIONS (1)
  - Anaphylactoid reaction [Recovered/Resolved]

NARRATIVE: CASE EVENT DATE: 20240125
